FAERS Safety Report 4439457-9 (Version None)
Quarter: 2004Q3

REPORT INFORMATION
  Report Type: 
  Country: None (occurrence: None)
  Receive Date: 20040728
  Receipt Date: 20040309
  Transmission Date: 20050211
  Serious: No
  Sender: FDA-Public Use
  Company Number: USA040361436

PATIENT
  Age: 30 Year
  Sex: Female
  Weight: 73 kg

DRUGS (2)
  1. STRATTERA [Suspect]
     Indication: ATTENTION DEFICIT/HYPERACTIVITY DISORDER
     Dosage: 80 MG DAY
     Dates: start: 20040201
  2. ZYPREXA [Suspect]
     Indication: DELUSION
     Dosage: 2.5 MG
     Dates: start: 20040101

REACTIONS (6)
  - DRUG INEFFECTIVE [None]
  - INCREASED APPETITE [None]
  - MENSTRUAL DISORDER [None]
  - PREMENSTRUAL SYNDROME [None]
  - PSYCHOMOTOR HYPERACTIVITY [None]
  - THINKING ABNORMAL [None]
